FAERS Safety Report 7250349-2 (Version None)
Quarter: 2011Q1

REPORT INFORMATION
  Report Type: 
  Country: None (occurrence: None)
  Receive Date: 20110128
  Receipt Date: 20110121
  Transmission Date: 20110831
  Serious: Yes (Hospitalization)
  Sender: FDA-Public Use
  Company Number: FR-PFIZER INC-2011015150

PATIENT
  Age: 80 Year
  Sex: Male

DRUGS (13)
  1. CLINDAMYCIN PHOSPHATE [Suspect]
     Dosage: 1000 MG, 3X/DAY
     Dates: start: 20101011, end: 20101220
  2. LEXOMIL [Concomitant]
     Dosage: 0.5 DF, 1X/DAY
  3. TANAKAN [Concomitant]
     Dosage: UNK
  4. CLINDAMYCIN PHOSPHATE [Suspect]
     Indication: POSTOPERATIVE WOUND INFECTION
     Dosage: UNK
     Route: 048
     Dates: start: 20100920, end: 20101006
  5. CRESTOR [Concomitant]
     Dosage: UNK
  6. IKOREL [Concomitant]
     Dosage: UNK
  7. TRAMADOL [Concomitant]
     Dosage: UNK
  8. KARDEGIC [Concomitant]
  9. TRINIPATCH [Concomitant]
     Dosage: UNK
  10. MOTILIUM [Concomitant]
  11. NEXIUM [Concomitant]
     Dosage: UNK
  12. RIFADIN [Suspect]
     Indication: POSTOPERATIVE WOUND INFECTION
     Dosage: UNK
     Route: 048
     Dates: start: 20100920, end: 20101006
  13. TRIMETAZIDINE [Concomitant]
     Dosage: UNK

REACTIONS (8)
  - RASH [None]
  - DECREASED APPETITE [None]
  - PRURITUS [None]
  - GENERAL PHYSICAL HEALTH DETERIORATION [None]
  - WEIGHT DECREASED [None]
  - FATIGUE [None]
  - RASH MACULAR [None]
  - NAUSEA [None]
